FAERS Safety Report 9768378 (Version 3)
Quarter: 2014Q3

REPORT INFORMATION
  Report Type: Report from Study
  Country: CA (occurrence: CA)
  Receive Date: 20131217
  Receipt Date: 20140814
  Transmission Date: 20150326
  Serious: Yes (Other)
  Sender: FDA-Public Use
  Company Number: CA-UCBSA-091843

PATIENT
  Sex: Female
  Weight: 90.7 kg

DRUGS (9)
  1. CERTOLIZUMAB PEGOL RA [Suspect]
     Active Substance: CERTOLIZUMAB PEGOL
     Indication: RHEUMATOID ARTHRITIS
     Dosage: 400 MG, EV 4 WEEKS
     Route: 058
     Dates: start: 20130625, end: 201312
  2. CERTOLIZUMAB PEGOL RA [Suspect]
     Active Substance: CERTOLIZUMAB PEGOL
     Dosage: 400 MG, EV 2 WEEKS(QOW)
     Route: 058
     Dates: start: 20130430, end: 20130528
  3. OMNARIS [Concomitant]
     Active Substance: CICLESONIDE
     Dosage: 50MCG
  4. KOFFEX [Concomitant]
  5. AURO-CEFUROXIME [Concomitant]
     Dosage: 500MG
  6. VITAMIN B + D [Concomitant]
  7. ADVIL [Concomitant]
     Active Substance: IBUPROFEN
  8. SYNTHROID [Concomitant]
     Active Substance: LEVOTHYROXINE SODIUM
     Dates: start: 201312
  9. TEVE-MONTELUKAST [Concomitant]
     Dosage: 10MG

REACTIONS (5)
  - Thyroid disorder [Unknown]
  - Fatigue [Not Recovered/Not Resolved]
  - Paronychia [Not Recovered/Not Resolved]
  - Cough [Not Recovered/Not Resolved]
  - Nasopharyngitis [Not Recovered/Not Resolved]

NARRATIVE: CASE EVENT DATE: 2013
